FAERS Safety Report 8602000-4 (Version None)
Quarter: 2012Q3

REPORT INFORMATION
  Report Type: 
  Country: None (occurrence: None)
  Receive Date: 20120817
  Receipt Date: 20120813
  Transmission Date: 20120928
  Serious: Yes (Other)
  Sender: FDA-Public Use
  Company Number: US-PFIZER INC-2012166487

PATIENT
  Sex: Male
  Weight: 68.027 kg

DRUGS (1)
  1. NICOTINE [Suspect]
     Dosage: UNK

REACTIONS (3)
  - DRUG HYPERSENSITIVITY [None]
  - CONVULSION [None]
  - PARTIAL SEIZURES [None]
